FAERS Safety Report 9612014 (Version 4)
Quarter: 2013Q4

REPORT INFORMATION
  Report Type: Report from Study
  Country: BE (occurrence: BE)
  Receive Date: 20131010
  Receipt Date: 20131114
  Transmission Date: 20140711
  Serious: Yes (Hospitalization)
  Sender: FDA-Public Use
  Company Number: BE-TEVA-347854ISR

PATIENT
  Age: 67 Year
  Sex: Female

DRUGS (40)
  1. 5- FU (FLUOROURACIL) [Suspect]
     Indication: METASTATIC GASTRIC CANCER
     Dosage: CYCLE 1
     Route: 041
     Dates: start: 20120305, end: 20120310
  2. 5- FU (FLUOROURACIL) [Suspect]
     Dosage: CYCLE 2
     Route: 041
     Dates: start: 20120326, end: 20120331
  3. 5- FU (FLUOROURACIL) [Suspect]
     Dosage: CURRENT CYCLE 4 STARTED ON 31-MAY-2012
     Route: 041
     Dates: start: 20120509, end: 20120605
  4. CDDP (CISPLATIN) [Suspect]
     Indication: METASTATIC GASTRIC CANCER
     Dosage: CYCLE 1
     Route: 041
     Dates: start: 20120305, end: 20120305
  5. CDDP (CISPLATIN) [Suspect]
     Dosage: CYCLE 2
     Route: 041
     Dates: start: 20120326, end: 20120326
  6. CDDP (CISPLATIN) [Suspect]
     Dosage: CURRENT CYCLE 4 STARTED ON 31MAY2012
     Route: 041
     Dates: start: 20120509, end: 20120531
  7. ATACAND [Concomitant]
     Indication: HYPERTENSION
     Dates: start: 20050525
  8. ATACAND [Concomitant]
     Dates: start: 20120411
  9. ORTHO-GYNEST [Concomitant]
     Indication: OOPHORECTOMY
     Dates: start: 20110307
  10. OLAMINE [Concomitant]
     Indication: VITAMIN SUPPLEMENTATION
     Dates: start: 20101208
  11. NEUROBION [Concomitant]
     Indication: GASTRECTOMY
     Dates: start: 20100330
  12. BAREXAL [Concomitant]
     Indication: DIARRHOEA
     Dates: start: 20120305
  13. SODIUM BICARBONATE [Concomitant]
     Indication: STOMATITIS
     Route: 002
     Dates: start: 20120313
  14. SODIUM BICARBONATE [Concomitant]
     Indication: STOMATITIS
  15. DAFALGAN [Concomitant]
     Indication: HEADACHE
     Dates: start: 20120309
  16. DAFALGAN [Concomitant]
     Indication: PAIN
     Dates: start: 20120328
  17. DAFALGAN [Concomitant]
     Dates: start: 20120411
  18. IMODIUM [Concomitant]
     Indication: DIARRHOEA
     Dates: start: 20120312
  19. MOTILIUM [Concomitant]
     Indication: NAUSEA
     Dates: start: 20120311
  20. MOVICOL [Concomitant]
     Indication: CONSTIPATION
     Dates: start: 20120313
  21. LITICAN [Concomitant]
     Indication: NAUSEA
     Dates: start: 20120311
  22. MS CONTIN [Concomitant]
     Indication: ODYNOPHAGIA
     Dates: start: 20120316
  23. MS DIRECT [Concomitant]
     Indication: ODYNOPHAGIA
     Dates: start: 20120315
  24. PRIMPERAN [Concomitant]
     Indication: NAUSEA
     Dates: start: 20120403
  25. PRIMPERAN [Concomitant]
     Dates: start: 20120316
  26. PRESERVISION(PRESERVISION LUTEIN) [Concomitant]
     Indication: VITAMIN SUPPLEMENTATION
     Dates: start: 20101001
  27. SOFTENE [Concomitant]
     Indication: CONSTIPATION
     Dates: start: 20120315
  28. ZINNAT [Concomitant]
     Indication: BRONCHITIS
     Dates: start: 20120531, end: 20120603
  29. ERYTHROPOIETIN [Concomitant]
     Indication: ANAEMIA PROPHYLAXIS
     Dates: start: 20120620, end: 20120620
  30. BLOOD TRANSFUSION [Concomitant]
     Indication: ANAEMIA
     Dates: start: 20120620, end: 20120620
  31. ENTEROL [Concomitant]
     Indication: DIARRHOEA
  32. EMEND(APREPITANT) [Concomitant]
     Indication: PROPHYLAXIS OF NAUSEA AND VOMITING
     Dates: start: 20120305, end: 20120602
  33. MEDROL [Concomitant]
     Indication: PROPHYLAXIS
     Dates: start: 20120305
  34. ISOSOURCE ENERGY [Concomitant]
     Indication: DECREASED APPETITE
     Dates: start: 20120327, end: 20120607
  35. PANTOMED [Concomitant]
     Indication: DYSPEPSIA
     Dates: start: 20120406
  36. PANTOMED [Concomitant]
     Indication: NAUSEA
  37. POTASSIUM CHLORIDE [Concomitant]
     Indication: PROPHYLAXIS
     Dates: start: 20120411, end: 20120601
  38. FRAXIPARIN [Concomitant]
     Indication: THROMBOSIS PROPHYLAXIS
     Dates: start: 20120531, end: 20120601
  39. ZANTAC [Concomitant]
     Indication: DYSPEPSIA
     Dates: start: 20120601, end: 20120601
  40. ARANESP [Concomitant]
     Indication: ANAEMIA
     Dates: start: 20120604, end: 20120604

REACTIONS (3)
  - Pyrexia [Recovered/Resolved]
  - Aplastic anaemia [Unknown]
  - Bronchitis [Unknown]
